FAERS Safety Report 23036090 (Version 1)
Quarter: 2023Q4

REPORT INFORMATION
  Report Type: Spontaneous
  Country: US (occurrence: US)
  Receive Date: 20231006
  Receipt Date: 20231006
  Transmission Date: 20240109
  Serious: No
  Sender: FDA-Public Use
  Company Number: US-AJANTA-2023AJA00115

PATIENT
  Sex: Female

DRUGS (2)
  1. DULOXETINE [Suspect]
     Active Substance: DULOXETINE
     Indication: Muscle disorder
  2. DULOXETINE [Suspect]
     Active Substance: DULOXETINE

REACTIONS (3)
  - Hypoacusis [Recovering/Resolving]
  - Sleep disorder [Recovering/Resolving]
  - Headache [Recovering/Resolving]
